FAERS Safety Report 20120116 (Version 1)
Quarter: 2021Q4

REPORT INFORMATION
  Report Type: Spontaneous
  Country: CN (occurrence: CN)
  Receive Date: 20211126
  Receipt Date: 20211126
  Transmission Date: 20220303
  Serious: Yes (Death, Other)
  Sender: FDA-Public Use
  Company Number: CN-BoehringerIngelheim-2021-BI-140335

PATIENT
  Age: 68 Year
  Sex: Male

DRUGS (9)
  1. AFATINIB [Suspect]
     Active Substance: AFATINIB
     Indication: Lung adenocarcinoma
     Dosage: 40 MG/DAY
     Dates: start: 20181120
  2. AFATINIB [Suspect]
     Active Substance: AFATINIB
     Indication: Gene mutation
  3. CATEQUENTINIB [Suspect]
     Active Substance: CATEQUENTINIB
     Indication: Lung adenocarcinoma
     Dosage: 12 MG/DAY, D1-D14
     Dates: start: 20181120, end: 20200617
  4. CATEQUENTINIB [Suspect]
     Active Substance: CATEQUENTINIB
     Indication: Gene mutation
  5. CARBOPLATIN;PEMETREXED [Concomitant]
     Indication: Chemotherapy
     Dosage: PEMETREXED (500 MG/M2, D1) AND CARBOPLATIN (AUC = 5, D2) FOR 4 CYCLES
     Dates: end: 20180928
  6. PEMETREXED [Concomitant]
     Active Substance: PEMETREXED
     Indication: Chemotherapy
     Dosage: PEMETREXED (500 MG/M2, D1) ALONE FOR 2 CYCLES
     Dates: end: 20180928
  7. DOCETAXEL [Concomitant]
     Active Substance: DOCETAXEL
     Indication: Chemotherapy
  8. TEGAFUR [Concomitant]
     Active Substance: TEGAFUR
     Indication: Chemotherapy
     Dosage: (50 MG/BID, D1-D14)
  9. TORIPALIMAB [Concomitant]
     Active Substance: TORIPALIMAB
     Indication: Product used for unknown indication

REACTIONS (5)
  - Death [Fatal]
  - Lung adenocarcinoma [Unknown]
  - Haemorrhage [Unknown]
  - Metastases to central nervous system [Unknown]
  - Diarrhoea [Recovering/Resolving]

NARRATIVE: CASE EVENT DATE: 20190101
